FAERS Safety Report 8305195-5 (Version None)
Quarter: 2012Q2

REPORT INFORMATION
  Report Type: 
  Country: None (occurrence: None)
  Receive Date: 20120423
  Receipt Date: 20120419
  Transmission Date: 20120825
  Serious: Yes (Hospitalization, Other)
  Sender: FDA-Public Use
  Company Number: US-TEVA-021750

PATIENT
  Age: 77 Year
  Sex: Male

DRUGS (1)
  1. ZIAC [Suspect]
     Route: 048

REACTIONS (13)
  - OEDEMA PERIPHERAL [None]
  - DERMATITIS PSORIASIFORM [None]
  - MUCOSAL EROSION [None]
  - RASH PUSTULAR [None]
  - STAPHYLOCOCCAL BACTERAEMIA [None]
  - DERMATITIS BULLOUS [None]
  - SKIN EXFOLIATION [None]
  - PEMPHIGUS [None]
  - CONJUNCTIVAL HYPERAEMIA [None]
  - HICCUPS [None]
  - RASH PRURITIC [None]
  - DERMATITIS EXFOLIATIVE [None]
  - PYODERMA [None]
